FAERS Safety Report 10523870 (Version 2)
Quarter: 2014Q4

REPORT INFORMATION
  Report Type: Report from Study
  Country: US (occurrence: US)
  Receive Date: 20141017
  Receipt Date: 20141114
  Transmission Date: 20150528
  Serious: Yes (Other)
  Sender: FDA-Public Use
  Company Number: US-AMGEN-USASL2014079628

PATIENT
  Age: 74 Year
  Sex: Female
  Weight: 78.01 kg

DRUGS (7)
  1. ENBREL [Suspect]
     Active Substance: ETANERCEPT
     Indication: PRODUCT USED FOR UNKNOWN INDICATION
     Dosage: 50 MG, QWK
     Route: 058
     Dates: start: 201309, end: 201402
  2. FOLIC ACID. [Concomitant]
     Active Substance: FOLIC ACID
     Dosage: UNK
  3. MELOXICAM. [Concomitant]
     Active Substance: MELOXICAM
     Dosage: 15 MG, UNK
  4. PRAMIPEXOLE [Concomitant]
     Active Substance: PRAMIPEXOLE
     Dosage: 0.125 MG, UNK
  5. PREDNISONE. [Concomitant]
     Active Substance: PREDNISONE
     Dosage: 2.5 MG, UNK
  6. METHOTREXATE [Concomitant]
     Active Substance: METHOTREXATE
     Dosage: 2.5 MG, UNK
  7. XELJANZ [Concomitant]
     Active Substance: TOFACITINIB CITRATE
     Dosage: UNK

REACTIONS (4)
  - Fall [Unknown]
  - Impaired healing [Unknown]
  - Foot deformity [Unknown]
  - Foot fracture [Unknown]

NARRATIVE: CASE EVENT DATE: 2014
